FAERS Safety Report 21105151 (Version 1)
Quarter: 2022Q3

REPORT INFORMATION
  Report Type: Spontaneous
  Country: US (occurrence: None)
  Receive Date: 20220719
  Receipt Date: 20220719
  Transmission Date: 20221027
  Serious: No
  Sender: FDA-Public Use
  Company Number: None

PATIENT
  Age: 62 Year
  Sex: Female

DRUGS (1)
  1. YUVAFEM [Suspect]
     Active Substance: ESTRADIOL HEMIHYDRATE
     Indication: Vulvovaginal dryness
     Dosage: FREQUENCY : AT BEDTIME;?
     Route: 067
     Dates: start: 20220627, end: 20220703

REACTIONS (3)
  - Pain [None]
  - Tissue irritation [None]
  - Infection [None]

NARRATIVE: CASE EVENT DATE: 20220701
